FAERS Safety Report 17608565 (Version 3)
Quarter: 2020Q2

REPORT INFORMATION
  Report Type: Spontaneous
  Country: US (occurrence: US)
  Receive Date: 20200401
  Receipt Date: 20200625
  Transmission Date: 20200713
  Serious: Yes (Hospitalization, Other)
  Sender: FDA-Public Use
  Company Number: US-SA-2020SA078773

PATIENT

DRUGS (35)
  1. DUPIXENT [Suspect]
     Active Substance: DUPILUMAB
     Indication: DERMATITIS ATOPIC
     Dosage: 600 MG, 1X
     Route: 058
  2. GARLIC [ALLIUM SATIVUM] [Concomitant]
     Active Substance: GARLIC
  3. AJOVY [Concomitant]
     Active Substance: FREMANEZUMAB-VFRM
  4. PROGESTERONE. [Concomitant]
     Active Substance: PROGESTERONE
  5. DOXEPIN HCL [Concomitant]
     Active Substance: DOXEPIN HYDROCHLORIDE
  6. DUPIXENT [Suspect]
     Active Substance: DUPILUMAB
     Dosage: 300 MG, QOW
  7. DIPHENHYDRAMINE. [Concomitant]
     Active Substance: DIPHENHYDRAMINE
  8. IBUPROFEN. [Concomitant]
     Active Substance: IBUPROFEN
  9. PROBIOTICS NOS [Concomitant]
     Active Substance: PROBIOTICS NOS
  10. METHOCARBAMOL. [Concomitant]
     Active Substance: METHOCARBAMOL
  11. COENZYME Q10 [Concomitant]
     Active Substance: UBIDECARENONE
  12. NAPROXEN. [Concomitant]
     Active Substance: NAPROXEN
  13. HYDROXYZINE HCL [Concomitant]
     Active Substance: HYDROXYZINE HYDROCHLORIDE
  14. THYROID [Concomitant]
     Active Substance: LEVOTHYROXINE\LIOTHYRONINE
  15. ZOFRAN [Concomitant]
     Active Substance: ONDANSETRON HYDROCHLORIDE
  16. EPINEPHRINE. [Concomitant]
     Active Substance: EPINEPHRINE
  17. HIZENTRA [Concomitant]
     Active Substance: HUMAN IMMUNOGLOBULIN G
  18. SENNA LAXATIVE [Concomitant]
     Active Substance: SENNOSIDES
  19. TRYPTOPHAN [TRYPTOPHAN, L-] [Concomitant]
     Active Substance: TRYPTOPHAN
  20. FERROUS FUMARATE [Concomitant]
     Active Substance: FERROUS FUMARATE
  21. OXYCODONE HYDROCHLORIDE. [Concomitant]
     Active Substance: OXYCODONE HYDROCHLORIDE
  22. TURMERIC [CURCUMA LONGA] [Concomitant]
     Active Substance: HERBALS\TURMERIC
  23. MAGNESIUM CHLORIDE. [Concomitant]
     Active Substance: MAGNESIUM CHLORIDE
  24. MILK THISTLE [SILYBUM MARIANUM] [Concomitant]
     Active Substance: DIETARY SUPPLEMENT\HERBALS\MILK THISTLE
  25. PANTOPRAZOLE SODIUM. [Concomitant]
     Active Substance: PANTOPRAZOLE SODIUM
  26. ALPRAZOLAM. [Concomitant]
     Active Substance: ALPRAZOLAM
  27. AMBIEN [Concomitant]
     Active Substance: ZOLPIDEM TARTRATE
  28. MULTIVITAMINS [VITAMINS NOS] [Concomitant]
     Active Substance: VITAMINS
  29. LMX4 [Concomitant]
     Active Substance: LIDOCAINE
  30. METOCLOPRAMIDE HCL [Concomitant]
     Active Substance: METOCLOPRAMIDE HYDROCHLORIDE
  31. LINZESS [Concomitant]
     Active Substance: LINACLOTIDE
  32. ASMANEX HFA [Concomitant]
     Active Substance: MOMETASONE FUROATE
  33. SINGULAIR [Concomitant]
     Active Substance: MONTELUKAST SODIUM
  34. VINEGAR APPLE CIDER PLUS [Concomitant]
  35. VITAMIN C [Concomitant]
     Active Substance: ASCORBIC ACID

REACTIONS (5)
  - Sepsis [Unknown]
  - Bacterial infection [Unknown]
  - Aspergillus infection [Unknown]
  - Hallucination [Unknown]
  - Blister [Not Recovered/Not Resolved]

NARRATIVE: CASE EVENT DATE: 2020
